FAERS Safety Report 4376014-7 (Version None)
Quarter: 2004Q2

REPORT INFORMATION
  Report Type: 
  Country: None (occurrence: None)
  Receive Date: 20040607
  Receipt Date: 20040525
  Transmission Date: 20050107
  Serious: Yes (Other)
  Sender: FDA-Public Use
  Company Number: 2004196018FR

PATIENT
  Age: 58 Year
  Sex: Male

DRUGS (2)
  1. XALATAN [Suspect]
     Indication: OCULAR HYPERTENSION
     Dosage: 1 GTT, QD, OPHTHALMIC
     Route: 047
     Dates: start: 20031101, end: 20040101
  2. CARTEOLOL (CARTEOLOL) [Concomitant]

REACTIONS (7)
  - CARDIAC FAILURE [None]
  - EYE REDNESS [None]
  - FATIGUE [None]
  - HIRSUTISM [None]
  - LYMPHATIC DISORDER [None]
  - OEDEMA PERIPHERAL [None]
  - WEIGHT INCREASED [None]
